FAERS Safety Report 18672797 (Version 1)
Quarter: 2020Q4

REPORT INFORMATION
  Report Type: Spontaneous
  Country: JP (occurrence: JP)
  Receive Date: 20201229
  Receipt Date: 20201229
  Transmission Date: 20210114
  Serious: Yes (Hospitalization, Other)
  Sender: FDA-Public Use
  Company Number: JP-JNJFOC-20200728328

PATIENT

DRUGS (2)
  1. FENTANYL. [Suspect]
     Active Substance: FENTANYL
     Indication: PRODUCT USED FOR UNKNOWN INDICATION
     Dosage: UNKNOWN
     Route: 065
  2. ONEDURO [Suspect]
     Active Substance: FENTANYL
     Indication: PAIN
     Dosage: FENTANYL (ONE DAY MATRIX PATCH) 12.5MCG/HR
     Route: 062

REACTIONS (3)
  - Surgery [Unknown]
  - Myoclonus [Unknown]
  - Withdrawal syndrome [Unknown]
